FAERS Safety Report 8975248 (Version 1)
Quarter: 2012Q4

REPORT INFORMATION
  Report Type: 
  Country: US (occurrence: US)
  Receive Date: 20121219
  Receipt Date: 20121219
  Transmission Date: 20130627
  Serious: Yes (Death, Other)
  Sender: FDA-Public Use
  Company Number: US-BAXTER-2012BAX028054

PATIENT

DRUGS (2)
  1. CYCLOPHOSPHAMIDE FOR INJECTION, USP [Suspect]
     Indication: DRUG EXPOSURE VIA MOTHER
     Route: 064
  2. DOXORUBICIN [Suspect]
     Indication: DRUG EXPOSURE VIA MOTHER
     Route: 064

REACTIONS (5)
  - Autoimmune disorder [Fatal]
  - Foetal exposure during pregnancy [Recovered/Resolved]
  - Thrombocytopenia [Unknown]
  - Rash [Unknown]
  - Red blood cell sedimentation rate increased [Unknown]
